FAERS Safety Report 7688975-9 (Version None)
Quarter: 2011Q3

REPORT INFORMATION
  Report Type: 
  Country: None (occurrence: None)
  Receive Date: 20110817
  Receipt Date: 20110812
  Transmission Date: 20111222
  Serious: Yes (Hospitalization)
  Sender: FDA-Public Use
  Company Number: PHHY2011BR73157

PATIENT
  Age: 48 Year
  Sex: Male

DRUGS (3)
  1. ANTICONVULSIVANTS [Concomitant]
  2. ZOLEDRONOC ACID [Suspect]
     Indication: OSTEOPOROSIS
     Dosage: 5 MG, UNK
     Route: 042
  3. CALCIUM WITH VITAMIN D [Concomitant]

REACTIONS (1)
  - CONVULSION [None]
